FAERS Safety Report 25051923 (Version 1)
Quarter: 2025Q1

REPORT INFORMATION
  Report Type: Spontaneous
  Country: US (occurrence: US)
  Receive Date: 20250307
  Receipt Date: 20250307
  Transmission Date: 20250409
  Serious: Yes (Life-Threatening, Other)
  Sender: MALLINCKRODT
  Company Number: US-MALLINCKRODT-MNK202501330

PATIENT

DRUGS (1)
  1. NITRIC OXIDE [Suspect]
     Active Substance: NITRIC OXIDE
     Indication: Pulmonary hypertension
     Route: 055
     Dates: start: 20250227

REACTIONS (3)
  - Hypotension [Recovered/Resolved]
  - Complication associated with device [Recovered/Resolved]
  - Product use issue [Unknown]

NARRATIVE: CASE EVENT DATE: 20250227
